FAERS Safety Report 15750317 (Version 1)
Quarter: 2018Q4

REPORT INFORMATION
  Report Type: Spontaneous
  Country: KR (occurrence: KR)
  Receive Date: 20181221
  Receipt Date: 20181221
  Transmission Date: 20190205
  Serious: Yes (Other)
  Sender: FDA-Public Use
  Company Number: KR-ASTRAZENECA-2018SF66859

PATIENT
  Age: 80 Year
  Sex: Female

DRUGS (3)
  1. PEMETREXED. [Concomitant]
     Active Substance: PEMETREXED
  2. OSIMERTINIB. [Suspect]
     Active Substance: OSIMERTINIB
     Route: 048
  3. AFA [Concomitant]

REACTIONS (1)
  - Disease progression [Unknown]

NARRATIVE: CASE EVENT DATE: 20140606
